FAERS Safety Report 6173368-6 (Version None)
Quarter: 2009Q2

REPORT INFORMATION
  Report Type: 
  Country: None (occurrence: None)
  Receive Date: 20090424
  Receipt Date: 20081230
  Transmission Date: 20091009
  Serious: Yes (Other)
  Sender: FDA-Public Use
  Company Number: SPV1-2008-02723

PATIENT
  Age: 12 Year
  Sex: Male
  Weight: 36.3 kg

DRUGS (3)
  1. VYVANSE [Suspect]
     Indication: ATTENTION DEFICIT/HYPERACTIVITY DISORDER
     Dosage: 30 MG, 1X/DAY:QD, ORAL  50 MG, 1X/DAY:QD, ORAL
     Route: 048
     Dates: start: 20080828, end: 20081101
  2. VYVANSE [Suspect]
     Indication: ATTENTION DEFICIT/HYPERACTIVITY DISORDER
     Dosage: 30 MG, 1X/DAY:QD, ORAL  50 MG, 1X/DAY:QD, ORAL
     Route: 048
     Dates: start: 20081101, end: 20081215
  3. CLONIDINE [Concomitant]

REACTIONS (4)
  - DEPRESSION [None]
  - DRUG EFFECT DECREASED [None]
  - HOMICIDAL IDEATION [None]
  - MOOD SWINGS [None]
